FAERS Safety Report 20936411 (Version 4)
Quarter: 2022Q3

REPORT INFORMATION
  Report Type: Spontaneous
  Country: CN (occurrence: CN)
  Receive Date: 20220609
  Receipt Date: 20220711
  Transmission Date: 20221027
  Serious: Yes (Other)
  Sender: FDA-Public Use
  Company Number: CN-ORGANON-O2206CHN000218

PATIENT
  Age: 30 Year
  Sex: Male

DRUGS (1)
  1. DIPROSPAN [Suspect]
     Active Substance: BETAMETHASONE DIPROPIONATE\BETAMETHASONE SODIUM PHOSPHATE
     Indication: Alopecia areata
     Dosage: INJECTED ON THE BUTTOCK, ONCE
     Dates: start: 20220523

REACTIONS (23)
  - Abdominal discomfort [Recovered/Resolved]
  - Palpitations [Recovered/Resolved]
  - Tremor [Recovering/Resolving]
  - Palpitations [Recovering/Resolving]
  - Vomiting [Recovering/Resolving]
  - Blood pressure abnormal [Recovering/Resolving]
  - Dyskinesia [Recovering/Resolving]
  - Tongue discolouration [Unknown]
  - Myalgia [Unknown]
  - Agitation [Unknown]
  - Abdominal discomfort [Unknown]
  - Contusion [Unknown]
  - Poor quality sleep [Recovering/Resolving]
  - Hyperhidrosis [Recovered/Resolved]
  - Hyperhidrosis [Unknown]
  - Hypertension [Recovering/Resolving]
  - Vision blurred [Recovering/Resolving]
  - Tinnitus [Unknown]
  - Dizziness [Unknown]
  - Anxiety [Unknown]
  - Abnormal sensation in eye [Not Recovered/Not Resolved]
  - Sensory disturbance [Not Recovered/Not Resolved]
  - Insomnia [Unknown]

NARRATIVE: CASE EVENT DATE: 20220101
